FAERS Safety Report 4900609-2 (Version None)
Quarter: 2006Q1

REPORT INFORMATION
  Report Type: 
  Country: None (occurrence: None)
  Receive Date: 20060131
  Receipt Date: 20060118
  Transmission Date: 20060701
  Serious: Yes (Hospitalization, Other)
  Sender: FDA-Public Use
  Company Number: 2006009639

PATIENT
  Age: 63 Year
  Sex: Female
  Weight: 87.0906 kg

DRUGS (11)
  1. ZITHROMAX [Suspect]
     Indication: INFECTION
     Dosage: 500 MG (250 MG, 1 IN 1 D); ORAL
     Route: 048
     Dates: start: 20060112
  2. METHADONE [Concomitant]
  3. FOSAMAX [Concomitant]
  4. KEPPRA [Concomitant]
  5. ASPIRIN [Concomitant]
  6. NEURONTIN [Concomitant]
  7. EFFEXOR [Concomitant]
  8. BACLOFEN [Concomitant]
  9. ALL OTHER THERAPEUTIC PRODUCTS (ALL OTHER THERAPEUTIC PRODUCTS) [Concomitant]
  10. REMERON [Concomitant]
  11. VIVACTIL [Concomitant]

REACTIONS (5)
  - ANGIONEUROTIC OEDEMA [None]
  - IATROGENIC INJURY [None]
  - INTUBATION COMPLICATION [None]
  - SEPSIS [None]
  - SPUTUM DISCOLOURED [None]
